FAERS Safety Report 7825372-7 (Version None)
Quarter: 2011Q4

REPORT INFORMATION
  Report Type: 
  Country: None (occurrence: None)
  Receive Date: 20111017
  Receipt Date: 20110930
  Transmission Date: 20120403
  Serious: Yes (Death)
  Sender: FDA-Public Use
  Company Number: TCI2011A05100

PATIENT
  Age: 76 Year
  Sex: Male

DRUGS (9)
  1. MICARDIS [Concomitant]
  2. LIVALO [Concomitant]
  3. DIGOXIN [Concomitant]
  4. WARFARIN SODIUM [Concomitant]
  5. AMLODIPINE BESYLATE [Concomitant]
  6. PLAVIX [Concomitant]
  7. GLUFAST (MITIGLINIDE CALCIUM) [Concomitant]
  8. ACTOS [Suspect]
     Indication: TYPE 2 DIABETES MELLITUS
     Dosage: 15 MG (15 MG,1 D) PER ORAL ; 30 MG (30 MG,1 D) PER ORAL
     Route: 048
     Dates: start: 20090916
  9. ACTOS [Suspect]
     Indication: TYPE 2 DIABETES MELLITUS
     Dosage: 15 MG (15 MG,1 D) PER ORAL ; 30 MG (30 MG,1 D) PER ORAL
     Route: 048
     Dates: end: 20110824

REACTIONS (2)
  - FALL [None]
  - ACUTE MYOCARDIAL INFARCTION [None]
